FAERS Safety Report 7589472 (Version 3)
Quarter: 2016Q4

REPORT INFORMATION
  Report Type: Report from Study
  Country: DE (occurrence: DE)
  Receive Date: 20100916
  Receipt Date: 20161223
  Transmission Date: 20170207
  Serious: Yes (Hospitalization, Other)
  Sender: FDA-Public Use
  Company Number: DE-ROCHE-727143

PATIENT
  Age: 78 Year
  Sex: Male
  Weight: 85.2 kg

DRUGS (8)
  1. ALLOPURINOL. [Suspect]
     Active Substance: ALLOPURINOL
     Indication: PREMEDICATION
     Dosage: DAY 1
     Route: 048
     Dates: start: 20100119, end: 20100318
  2. PREDNISOLON [Concomitant]
     Active Substance: PREDNISOLONE
     Indication: PREMEDICATION
     Dosage: DAY 1-4
     Route: 048
     Dates: start: 20100119, end: 20100318
  3. BENDAMUSTINE [Suspect]
     Active Substance: BENDAMUSTINE
     Indication: CHRONIC LYMPHOCYTIC LEUKAEMIA
     Route: 042
     Dates: start: 20100119, end: 20100318
  4. VERGENTAN [Suspect]
     Active Substance: ALIZAPRIDE HYDROCHLORIDE
     Indication: PROPHYLAXIS OF NAUSEA AND VOMITING
     Dosage: DAY 4-6
     Route: 048
     Dates: start: 20100119, end: 20100318
  5. RITUXIMAB [Suspect]
     Active Substance: RITUXIMAB
     Indication: CHRONIC LYMPHOCYTIC LEUKAEMIA
     Route: 042
     Dates: start: 20100119, end: 20100318
  6. TAVEGIL [Concomitant]
     Active Substance: CLEMASTINE FUMARATE
     Indication: PREMEDICATION
     Dosage: DAY 1-3
     Route: 042
     Dates: start: 20100119, end: 20100318
  7. RANITIDIN [Concomitant]
     Active Substance: RANITIDINE HYDROCHLORIDE
     Indication: PREMEDICATION
     Dosage: DAY 1-3
     Route: 042
     Dates: start: 20100119, end: 20100318
  8. GRANISETRON [Suspect]
     Active Substance: GRANISETRON
     Indication: PROPHYLAXIS OF NAUSEA AND VOMITING
     Dosage: DAY 2-3
     Route: 042
     Dates: start: 20100119, end: 20100318

REACTIONS (5)
  - Left ventricular dysfunction [Unknown]
  - Interstitial lung disease [Recovered/Resolved]
  - Pulmonary sepsis [Recovered/Resolved]
  - Myocardial ischaemia [Unknown]
  - Septic shock [Recovered/Resolved]

NARRATIVE: CASE EVENT DATE: 201003
